FAERS Safety Report 6142698-6 (Version None)
Quarter: 2009Q2

REPORT INFORMATION
  Report Type: 
  Country: None (occurrence: None)
  Receive Date: 20090403
  Receipt Date: 20090204
  Transmission Date: 20091009
  Serious: No
  Sender: FDA-Public Use
  Company Number: FR-JNJFOC-20090201194

PATIENT
  Age: 12 Year
  Sex: Male

DRUGS (7)
  1. RISPERIDONE [Suspect]
     Indication: AGITATION
     Route: 048
  2. RISPERIDONE [Suspect]
     Indication: ANXIETY
     Route: 048
  3. RISPERIDONE [Suspect]
     Indication: ABNORMAL BEHAVIOUR
     Route: 048
  4. RISPERDAL [Suspect]
     Indication: AGITATION
     Route: 048
  5. RISPERDAL [Suspect]
     Indication: ANXIETY
     Route: 048
  6. RISPERDAL [Suspect]
     Indication: ABNORMAL BEHAVIOUR
     Route: 048
  7. RITALIN [Concomitant]
     Route: 048

REACTIONS (2)
  - ABDOMINAL PAIN [None]
  - DIARRHOEA [None]
